FAERS Safety Report 8187413-X (Version None)
Quarter: 2012Q1

REPORT INFORMATION
  Report Type: 
  Country: None (occurrence: None)
  Receive Date: 20120306
  Receipt Date: 20120228
  Transmission Date: 20120608
  Serious: Yes (Hospitalization)
  Sender: FDA-Public Use
  Company Number: FR-PFIZER INC-2012054734

PATIENT
  Age: 26 Year
  Sex: Male

DRUGS (15)
  1. VFEND [Suspect]
     Indication: ASPERGILLOSIS
     Dosage: 250 MG, 2X/DAY
     Route: 048
     Dates: start: 20110830
  2. PYRIMETHAMINE TAB [Suspect]
     Indication: CEREBRAL TOXOPLASMOSIS
     Dosage: 25 MG, 1X/DAY
     Route: 048
     Dates: start: 20110815
  3. PANTOPRAZOLE [Suspect]
     Dosage: 40 MG DAILY
  4. DESLORATADINE [Concomitant]
     Dosage: 1 DF, 1X/DAY
  5. CALCIPARINE [Concomitant]
  6. KEPPRA [Suspect]
     Dosage: 250 MG, 2X/DAY
     Route: 048
  7. NEORAL [Concomitant]
     Dosage: 100 MG, 2X/DAY
  8. LEDERFOLIN [Concomitant]
     Dosage: 25 MG DAILY
  9. PREVISCAN [Concomitant]
  10. PREDNISOLONE [Concomitant]
     Dosage: 15 MG DAILY
  11. CREON [Concomitant]
     Dosage: 25000 IU, 2X/DAY
  12. VITAMIN D [Concomitant]
  13. CLINDAMYCIN HCL [Suspect]
     Indication: CEREBRAL TOXOPLASMOSIS
     Dosage: 300 MG, EVERY 4 HRS
     Dates: start: 20111129
  14. IMOVANE [Concomitant]
     Dosage: 1 DF, 1X/DAY
  15. VITAMIN B1 AND B6 [Concomitant]

REACTIONS (1)
  - NEUTROPENIA [None]
